FAERS Safety Report 25752186 (Version 1)
Quarter: 2025Q3

REPORT INFORMATION
  Report Type: Spontaneous
  Country: US (occurrence: None)
  Receive Date: 20250902
  Receipt Date: 20250902
  Transmission Date: 20251021
  Serious: No
  Sender: FDA-CTU
  Company Number: None

PATIENT
  Age: 28 Year
  Sex: Female
  Weight: 49.5 kg

DRUGS (1)
  1. VENLAFAXINE [Suspect]
     Active Substance: VENLAFAXINE HYDROCHLORIDE

REACTIONS (5)
  - Drug exposure before pregnancy [None]
  - Therapy cessation [None]
  - Crying [None]
  - Feeling abnormal [None]
  - Near death experience [None]

NARRATIVE: CASE EVENT DATE: 20120914
